FAERS Safety Report 7921455-1 (Version None)
Quarter: 2011Q4

REPORT INFORMATION
  Report Type: 
  Country: None (occurrence: None)
  Receive Date: 20111117
  Receipt Date: 20111110
  Transmission Date: 20120403
  Serious: Yes (Other)
  Sender: FDA-Public Use
  Company Number: US-ASTRAZENECA-2011SE47244

PATIENT
  Age: 63 Year
  Sex: Female

DRUGS (4)
  1. ARIMIDEX [Concomitant]
     Dates: start: 20091228
  2. ASPIRIN [Concomitant]
     Route: 048
     Dates: start: 20091208
  3. CRESTOR [Suspect]
     Route: 048
     Dates: start: 20091208
  4. LISINOPRIL [Concomitant]
     Route: 048
     Dates: start: 20091208

REACTIONS (1)
  - BREAST CANCER [None]
